FAERS Safety Report 21139920 (Version 1)
Quarter: 2022Q3

REPORT INFORMATION
  Report Type: Spontaneous
  Country: CN (occurrence: CN)
  Receive Date: 20220728
  Receipt Date: 20220728
  Transmission Date: 20221027
  Serious: No
  Sender: FDA-Public Use
  Company Number: CN-FreseniusKabi-FK202210172

PATIENT
  Age: 62 Year
  Sex: Male
  Weight: 65.00 kg

DRUGS (1)
  1. AMINO ACIDS, SOURCE UNSPECIFIED [Suspect]
     Active Substance: AMINO ACIDS, SOURCE UNSPECIFIED
     Indication: Nutritional supplementation
     Route: 041
     Dates: start: 20220512, end: 20220512

REACTIONS (3)
  - Erythema [Recovering/Resolving]
  - Swelling [Recovering/Resolving]
  - Puncture site pain [Recovering/Resolving]

NARRATIVE: CASE EVENT DATE: 20220512
